FAERS Safety Report 15709639 (Version 3)
Quarter: 2019Q4

REPORT INFORMATION
  Report Type: Spontaneous
  Country: US (occurrence: US)
  Receive Date: 20181211
  Receipt Date: 20191104
  Transmission Date: 20200122
  Serious: No
  Sender: FDA-Public Use
  Company Number: US-PFIZER INC-2018508927

PATIENT
  Age: 68 Year
  Sex: Male

DRUGS (1)
  1. SUTENT [Suspect]
     Active Substance: SUNITINIB MALATE
     Indication: RENAL CANCER
     Dosage: 50 MG, CYCLIC (1 TAB DAILY X 28 DAYS - OFF X14 DAYS)

REACTIONS (6)
  - Product label issue [Unknown]
  - Nervousness [Unknown]
  - Dyspepsia [Unknown]
  - Malaise [Unknown]
  - Muscle twitching [Unknown]
  - Peripheral swelling [Unknown]
